FAERS Safety Report 8970813 (Version 3)
Quarter: 2013Q2

REPORT INFORMATION
  Report Type: Spontaneous
  Country: JP (occurrence: JP)
  Receive Date: 20121218
  Receipt Date: 20130530
  Transmission Date: 20140414
  Serious: Yes (Hospitalization, Other)
  Sender: FDA-Public Use
  Company Number: JP-NOVOPROD-366454

PATIENT
  Age: 79 Year
  Sex: Female
  Weight: 49 kg

DRUGS (7)
  1. VICTOZA HIKACHU INJECTION [Suspect]
     Indication: TYPE 2 DIABETES MELLITUS
     Dosage: 0.3 MG, QD
     Route: 058
     Dates: start: 20120302
  2. VICTOZA HIKACHU INJECTION [Suspect]
     Dosage: 0.6 MG, QD
     Route: 058
     Dates: start: 20120308
  3. VICTOZA HIKACHU INJECTION [Suspect]
     Dosage: 0.9 MG, QD
     Route: 058
     Dates: start: 20120315, end: 20120807
  4. LAMISIL                            /00992601/ [Concomitant]
     Indication: ONYCHOMYCOSIS
     Dosage: 125 MG
     Route: 048
     Dates: start: 20120413, end: 20120807
  5. OPALMON [Concomitant]
     Indication: DIABETIC NEUROPATHY
     Dosage: 10 ?G
     Route: 048
     Dates: start: 20120413
  6. AMARYL [Concomitant]
     Indication: TYPE 2 DIABETES MELLITUS
     Dosage: 2 MG
     Route: 048
     Dates: start: 20101222, end: 20120807
  7. SENNOSIDE                          /00571901/ [Concomitant]
     Indication: DIABETIC NEUROPATHY
     Dosage: 24 G
     Route: 048
     Dates: start: 20090825

REACTIONS (1)
  - Cholecystitis acute [Recovered/Resolved]
